FAERS Safety Report 8585913-1 (Version None)
Quarter: 2012Q3

REPORT INFORMATION
  Report Type: 
  Country: None (occurrence: None)
  Receive Date: 20120802
  Receipt Date: 20120802
  Transmission Date: 20120928
  Serious: Yes (Hospitalization)
  Sender: FDA-Public Use
  Company Number: None

PATIENT
  Age: 48 Year
  Sex: Female
  Weight: 77.1115 kg

DRUGS (2)
  1. LEVAQUIN [Suspect]
     Indication: EAR INFECTION
     Dosage: 20MG 1X DAILY PO
     Route: 048
     Dates: start: 20120702, end: 20120710
  2. LEVAQUIN [Suspect]
     Indication: SINUSITIS
     Dosage: 20MG 1X DAILY PO
     Route: 048
     Dates: start: 20120702, end: 20120710

REACTIONS (1)
  - TENDONITIS [None]
